FAERS Safety Report 18274646 (Version 6)
Quarter: 2025Q2

REPORT INFORMATION
  Report Type: Spontaneous
  Country: US (occurrence: US)
  Receive Date: 20200916
  Receipt Date: 20250623
  Transmission Date: 20250716
  Serious: No
  Sender: PFIZER
  Company Number: US-PFIZER INC-2020348531

PATIENT
  Age: 69 Year
  Sex: Male
  Weight: 74.39 kg

DRUGS (7)
  1. XELJANZ XR [Suspect]
     Active Substance: TOFACITINIB CITRATE
     Indication: Rheumatoid arthritis
     Dosage: 11 MG, DAILY
     Route: 048
     Dates: start: 2018, end: 202502
  2. XELJANZ XR [Suspect]
     Active Substance: TOFACITINIB CITRATE
     Indication: Pain
     Dosage: 11 MG, 1X/DAY
     Route: 048
     Dates: end: 2025
  3. XELJANZ XR [Suspect]
     Active Substance: TOFACITINIB CITRATE
     Route: 048
  4. LIPITOR [Concomitant]
     Active Substance: ATORVASTATIN CALCIUM
     Indication: Blood cholesterol
     Dosage: UNK UNK, DAILY
     Route: 048
  5. LIPITOR [Concomitant]
     Active Substance: ATORVASTATIN CALCIUM
     Indication: Type IV hyperlipidaemia
  6. ADVIL [Concomitant]
     Active Substance: IBUPROFEN
     Dosage: UNK, 3X/DAY (AS NEEDED)
     Route: 048
  7. ADVIL [Concomitant]
     Active Substance: IBUPROFEN
     Dosage: UNK, DAILY, 12 A DAY

REACTIONS (5)
  - Drug ineffective [Recovering/Resolving]
  - Condition aggravated [Recovering/Resolving]
  - Synovial cyst [Recovering/Resolving]
  - Blood test abnormal [Recovering/Resolving]
  - Intentional product misuse [Unknown]

NARRATIVE: CASE EVENT DATE: 20230101
